FAERS Safety Report 4913887-0 (Version None)
Quarter: 2006Q1

REPORT INFORMATION
  Report Type: 
  Country: None (occurrence: None)
  Receive Date: 20060216
  Receipt Date: 20051031
  Transmission Date: 20060701
  Serious: Yes (Death, Hospitalization)
  Sender: FDA-Public Use
  Company Number: US-MERCK-0511USA00356

PATIENT
  Age: 59 Year
  Sex: Female
  Weight: 82 kg

DRUGS (29)
  1. VIOXX [Suspect]
     Indication: PAIN
     Route: 048
     Dates: start: 20010221, end: 20040312
  2. VIOXX [Suspect]
     Indication: NEUROPATHY
     Route: 048
     Dates: start: 20010221, end: 20040312
  3. IMDUR [Concomitant]
     Indication: HYPERTENSION
     Route: 065
  4. EFFEXOR [Concomitant]
     Indication: DEPRESSION
     Route: 065
  5. TRAZODONE HYDROCHLORIDE [Concomitant]
     Indication: DEPRESSION
     Route: 065
  6. MIRAPEX [Concomitant]
     Indication: DEPRESSION
     Route: 065
  7. SINGULAIR [Concomitant]
     Indication: ASTHMA
     Route: 048
  8. BUSPAR [Concomitant]
     Indication: ANXIETY
     Route: 065
  9. ZYRTEC [Concomitant]
     Indication: HYPERSENSITIVITY
     Route: 065
  10. COMBIVENT [Concomitant]
     Indication: ASTHMA
     Route: 065
  11. NYSTATIN [Concomitant]
     Indication: FUNGAL INFECTION
     Route: 065
  12. LORAZEPAM [Concomitant]
     Indication: SLEEP DISORDER
     Route: 065
  13. MECLIZINE [Concomitant]
     Indication: HYPERSENSITIVITY
     Route: 065
  14. [THERAPY UNSPECIFIED] [Concomitant]
     Indication: COLITIS ULCERATIVE
     Route: 065
  15. NITROFUR-C [Concomitant]
     Indication: BACTERIAL INFECTION
     Route: 065
  16. PROMETHAZINE [Concomitant]
     Indication: HYPERSENSITIVITY
     Route: 065
  17. AMOXICILLIN [Concomitant]
     Indication: BACTERIAL INFECTION
     Route: 065
  18. ALBUTEROL [Concomitant]
     Indication: ASTHMA
     Route: 065
  19. [THERAPY UNSPECIFIED] [Concomitant]
     Indication: COUGH
     Route: 065
  20. CEPHALEXIN [Concomitant]
     Route: 065
  21. LEVAQUIN [Concomitant]
     Indication: BACTERIAL INFECTION
     Route: 065
  22. WELLBUTRIN [Concomitant]
     Indication: DEPRESSION
     Route: 065
  23. CIPRO [Concomitant]
     Route: 065
  24. POLY TUSSIN DM [Concomitant]
     Indication: RESPIRATORY DISORDER
     Route: 065
  25. POLY HIST FORTE [Concomitant]
     Indication: HYPERSENSITIVITY
     Route: 065
  26. [THERAPY UNSPECIFIED] [Concomitant]
     Indication: FUNGAL INFECTION
     Route: 065
  27. EPIFOAM [Concomitant]
     Indication: SKIN IRRITATION
     Route: 065
  28. HYDROXYZINE HYDROCHLORIDE [Concomitant]
     Indication: HYPERSENSITIVITY
     Route: 065
  29. ZELNORM [Concomitant]
     Indication: CONSTIPATION
     Route: 065

REACTIONS (15)
  - ANGIOPATHY [None]
  - ARTERIOSCLEROSIS [None]
  - CARDIAC DISORDER [None]
  - CHEST PAIN [None]
  - CORONARY ARTERY DISEASE [None]
  - FALL [None]
  - GASTRIC DISORDER [None]
  - HEART RATE IRREGULAR [None]
  - HORMONE LEVEL ABNORMAL [None]
  - MIGRAINE [None]
  - MYOCARDIAL INFARCTION [None]
  - NEUROPATHY [None]
  - OEDEMA PERIPHERAL [None]
  - OSTEOPOROSIS [None]
  - UROGENITAL DISORDER [None]
